FAERS Safety Report 8243627-1 (Version None)
Quarter: 2012Q1

REPORT INFORMATION
  Report Type: 
  Country: None (occurrence: None)
  Receive Date: 20120315
  Receipt Date: 20100415
  Transmission Date: 20120608
  Serious: Yes (Other)
  Sender: FDA-Public Use
  Company Number: PHHY2010US24517

PATIENT
  Age: 22 Year
  Sex: Female

DRUGS (2)
  1. FANAPT [Suspect]
     Indication: SCHIZOPHRENIA
     Dosage: ORAL
     Route: 048
  2. LEXAPRO [Concomitant]

REACTIONS (3)
  - TACHYCARDIA [None]
  - DIZZINESS [None]
  - HEADACHE [None]
